FAERS Safety Report 13343576 (Version 1)
Quarter: 2017Q1

REPORT INFORMATION
  Report Type: Spontaneous
  Country: US (occurrence: US)
  Receive Date: 20170316
  Receipt Date: 20170316
  Transmission Date: 20170428
  Serious: Yes (Death, Other)
  Sender: FDA-Public Use
  Company Number: US-TEVA-749742USA

PATIENT
  Sex: Female

DRUGS (3)
  1. FENTANYL. [Suspect]
     Active Substance: FENTANYL
     Route: 062
     Dates: end: 20150223
  2. FENTANYL. [Suspect]
     Active Substance: FENTANYL
     Route: 062
     Dates: end: 20150223
  3. FENTANYL. [Suspect]
     Active Substance: FENTANYL
     Indication: PAIN
     Route: 062
     Dates: end: 20150223

REACTIONS (2)
  - Death [Fatal]
  - Drug ineffective [Unknown]
